FAERS Safety Report 13881648 (Version 3)
Quarter: 2017Q3

REPORT INFORMATION
  Report Type: Report from Study
  Country: US (occurrence: US)
  Receive Date: 20170818
  Receipt Date: 20170922
  Transmission Date: 20171127
  Serious: Yes (Hospitalization)
  Sender: FDA-Public Use
  Company Number: US-SA-2017SA119616

PATIENT
  Age: 55 Year
  Sex: Female
  Weight: 89.6 kg

DRUGS (34)
  1. ACYCLOVIR. [Concomitant]
     Active Substance: ACYCLOVIR
     Indication: PROPHYLAXIS
     Route: 048
     Dates: start: 20170417
  2. TURMERIC [Concomitant]
     Active Substance: HERBALS\TURMERIC
     Indication: PROPHYLAXIS
     Route: 048
     Dates: start: 201703
  3. ACETAMINOPHEN. [Concomitant]
     Active Substance: ACETAMINOPHEN
     Indication: PROPHYLAXIS
     Route: 048
     Dates: start: 20170417, end: 20170421
  4. METHYLPREDNISOLONE. [Concomitant]
     Active Substance: METHYLPREDNISOLONE
     Indication: PROPHYLAXIS
     Route: 042
     Dates: start: 20170417, end: 20170419
  5. IBUPROFEN. [Concomitant]
     Active Substance: IBUPROFEN
     Indication: PROPHYLAXIS
     Route: 048
     Dates: start: 20170417, end: 20170627
  6. SODIUM CHLORIDE. [Concomitant]
     Active Substance: SODIUM CHLORIDE
     Route: 065
     Dates: start: 20170629, end: 20170629
  7. SODIUM CHLORIDE. [Concomitant]
     Active Substance: SODIUM CHLORIDE
     Route: 065
     Dates: start: 20170630
  8. VANCOMYCIN [Concomitant]
     Active Substance: VANCOMYCIN
     Route: 065
     Dates: start: 20170627
  9. CIPROFLOXACIN. [Concomitant]
     Active Substance: CIPROFLOXACIN
     Indication: NEUROGENIC BLADDER
     Route: 048
     Dates: start: 2015
  10. SODIUM CHLORIDE. [Concomitant]
     Active Substance: SODIUM CHLORIDE
     Route: 065
     Dates: start: 20170627, end: 20170627
  11. BENADRYL [Concomitant]
     Active Substance: DIPHENHYDRAMINE HYDROCHLORIDE
     Route: 048
     Dates: start: 20170628
  12. LEMTRADA [Suspect]
     Active Substance: ALEMTUZUMAB
     Indication: MULTIPLE SCLEROSIS RELAPSE
     Route: 041
     Dates: start: 20170417, end: 20170421
  13. MIDAZOLAM [Concomitant]
     Active Substance: MIDAZOLAM HYDROCHLORIDE
     Indication: PROPHYLAXIS
     Route: 042
     Dates: start: 20170629, end: 20170629
  14. VALTREX [Concomitant]
     Active Substance: VALACYCLOVIR HYDROCHLORIDE
     Indication: HERPES SIMPLEX
     Route: 048
     Dates: start: 1988, end: 20170622
  15. ZANTAC [Concomitant]
     Active Substance: RANITIDINE HYDROCHLORIDE
     Indication: PROPHYLAXIS
     Route: 048
     Dates: start: 20170414, end: 20170424
  16. METHYLPREDNISOLONE. [Concomitant]
     Active Substance: METHYLPREDNISOLONE
     Indication: PROPHYLAXIS
     Route: 042
     Dates: start: 20170420, end: 20170421
  17. SODIUM CHLORIDE. [Concomitant]
     Active Substance: SODIUM CHLORIDE
     Route: 065
     Dates: start: 20170628, end: 20170628
  18. VITAMIN D [Concomitant]
     Active Substance: CHOLECALCIFEROL
     Indication: PROPHYLAXIS
     Route: 048
     Dates: start: 2015
  19. POLYETHYLENE GLYCOL [Concomitant]
     Active Substance: POLYETHYLENE GLYCOLS
     Indication: PROPHYLAXIS
     Route: 048
     Dates: start: 20170628, end: 20170628
  20. HEPARIN [Concomitant]
     Active Substance: HEPARIN SODIUM
     Indication: PROPHYLAXIS
     Dosage: DOSE:5000 UNIT(S)
     Route: 058
     Dates: start: 20170628, end: 20170702
  21. DIPHENHYDRAMINE. [Concomitant]
     Active Substance: DIPHENHYDRAMINE
     Indication: PROPHYLAXIS
     Route: 042
     Dates: start: 20170417, end: 20170421
  22. DOXYCYCLINE. [Concomitant]
     Active Substance: DOXYCYCLINE
     Indication: PROPHYLAXIS
     Route: 048
     Dates: start: 20160628
  23. ACYCLOVIR. [Concomitant]
     Active Substance: ACYCLOVIR
     Indication: PROPHYLAXIS
     Route: 048
     Dates: start: 20170628
  24. ALEVE [Concomitant]
     Active Substance: NAPROXEN SODIUM
     Indication: PAIN
     Route: 048
     Dates: start: 2013
  25. ZYRTEC [Concomitant]
     Active Substance: CETIRIZINE HYDROCHLORIDE
     Indication: PROPHYLAXIS
     Route: 048
     Dates: start: 20170414, end: 20170424
  26. ATARAX [Concomitant]
     Active Substance: HYDROXYZINE HYDROCHLORIDE
     Route: 065
     Dates: start: 20170628
  27. PROTONIX [Concomitant]
     Active Substance: PANTOPRAZOLE SODIUM
     Indication: PROPHYLAXIS
     Route: 048
     Dates: start: 20170628, end: 20170702
  28. FENTANYL. [Concomitant]
     Active Substance: FENTANYL
     Indication: PROPHYLAXIS
     Route: 042
     Dates: start: 20170629, end: 20170629
  29. BACLOFEN. [Concomitant]
     Active Substance: BACLOFEN
     Indication: MUSCLE SPASTICITY
     Route: 048
     Dates: start: 20170628
  30. BACLOFEN. [Concomitant]
     Active Substance: BACLOFEN
     Indication: MUSCLE SPASTICITY
     Route: 048
  31. FUROSEMIDE. [Concomitant]
     Active Substance: FUROSEMIDE
     Route: 048
  32. DOXYCYCLINE. [Concomitant]
     Active Substance: DOXYCYCLINE
     Indication: PROPHYLAXIS
     Route: 048
     Dates: start: 20170628, end: 20170629
  33. BACLOFEN. [Concomitant]
     Active Substance: BACLOFEN
     Indication: MUSCLE SPASTICITY
     Route: 048
     Dates: start: 2013
  34. POTASSIUM CHLORIDE. [Concomitant]
     Active Substance: POTASSIUM CHLORIDE
     Route: 048
     Dates: start: 20170628

REACTIONS (21)
  - Hypokalaemia [Recovered/Resolved]
  - Hypomagnesaemia [Recovered/Resolved]
  - Hypersensitivity vasculitis [Recovered/Resolved]
  - Blood immunoglobulin E increased [Recovered/Resolved]
  - Pruritus [Recovered/Resolved]
  - Diarrhoea [Recovered/Resolved]
  - Arthropod bite [Recovered/Resolved]
  - Acute kidney injury [Recovered/Resolved]
  - Dry mouth [Recovered/Resolved]
  - Mucosal inflammation [Recovering/Resolving]
  - Diverticulum intestinal [Recovering/Resolving]
  - Anxiety [Recovered/Resolved]
  - Angina pectoris [Recovered/Resolved]
  - Urinary incontinence [Recovered/Resolved]
  - Hypokalaemia [Recovered/Resolved]
  - Peripheral swelling [Recovered/Resolved]
  - Nausea [Recovered/Resolved]
  - Eosinophilia [Recovered/Resolved]
  - Vomiting [Recovered/Resolved]
  - Pruritus [Recovered/Resolved]
  - Haemorrhoids [Recovering/Resolving]

NARRATIVE: CASE EVENT DATE: 20170418
